FAERS Safety Report 6447027-6 (Version None)
Quarter: 2009Q4

REPORT INFORMATION
  Report Type: 
  Country: None (occurrence: None)
  Receive Date: 20091119
  Receipt Date: 20091110
  Transmission Date: 20100525
  Serious: Yes (Hospitalization)
  Sender: FDA-Public Use
  Company Number: FR-PFIZER INC-2009295340

PATIENT
  Age: 84 Year
  Sex: Female

DRUGS (13)
  1. AMLOR [Suspect]
     Dosage: 10 MG, 2X/DAY
     Route: 048
     Dates: start: 20090905, end: 20090910
  2. AMLOR [Suspect]
     Dosage: UNK
     Dates: start: 20090916
  3. COLOPEG [Suspect]
     Dosage: 1 DF, 2X/DAY
     Route: 048
     Dates: start: 20090908, end: 20090909
  4. BACTRIM DS [Suspect]
     Indication: URINARY TRACT INFECTION
     Dosage: 1 DF, 1X/DAY
     Route: 048
     Dates: start: 20090905, end: 20090908
  5. COZAAR [Suspect]
     Dosage: 50 MG, 1X/DAY
     Route: 048
     Dates: start: 20090906, end: 20090910
  6. SECTRAL [Suspect]
     Dosage: 200 MG, 2X/DAY
     Route: 048
     Dates: start: 20090801, end: 20090910
  7. SPECIAFOLDINE [Suspect]
     Dosage: 5 MG, 2X/DAY
     Route: 048
     Dates: start: 20090801, end: 20090910
  8. HYPERIUM [Suspect]
     Dosage: 1 MG, UNK
     Route: 048
     Dates: start: 20090801, end: 20090910
  9. HYPERIUM [Suspect]
     Dosage: UNK
     Dates: start: 20090914, end: 20090927
  10. CALCIPARINE [Suspect]
     Dosage: 5000 IU, 2X/DAY
     Route: 058
     Dates: start: 20090830, end: 20090909
  11. KARDEGIC [Concomitant]
     Dosage: UNK
     Dates: end: 20090906
  12. INSULIN DETEMIR [Concomitant]
     Dosage: 1 DF, 1X/DAY
     Dates: start: 20090906, end: 20090906
  13. BUMEX [Concomitant]

REACTIONS (5)
  - ACUTE GENERALISED EXANTHEMATOUS PUSTULOSIS [None]
  - NOSOCOMIAL INFECTION [None]
  - PROTEUS INFECTION [None]
  - PULMONARY OEDEMA [None]
  - URINARY TRACT INFECTION BACTERIAL [None]
